FAERS Safety Report 9308827 (Version 1)
Quarter: 2013Q2

REPORT INFORMATION
  Report Type: Spontaneous
  Country: US (occurrence: US)
  Receive Date: 20130524
  Receipt Date: 20130524
  Transmission Date: 20140414
  Serious: Yes (Hospitalization)
  Sender: FDA-Public Use
  Company Number: US-BRISTOL-MYERS SQUIBB COMPANY-18916247

PATIENT
  Age: 63 Year
  Sex: Male

DRUGS (1)
  1. SPRYCEL [Suspect]
     Indication: CHRONIC MYELOID LEUKAEMIA
     Route: 048
     Dates: start: 20110720

REACTIONS (4)
  - Aspiration [Unknown]
  - Chronic obstructive pulmonary disease [Unknown]
  - Post-traumatic stress disorder [Unknown]
  - Pain [Unknown]
